FAERS Safety Report 8217301 (Version 4)
Quarter: 2019Q2

REPORT INFORMATION
  Report Type: Report from Study
  Country: JP (occurrence: JP)
  Receive Date: 20111101
  Receipt Date: 20190424
  Transmission Date: 20190711
  Serious: Yes (Death, Disabling, Other)
  Sender: FDA-Public Use
  Company Number: PHHY2009JP18388

PATIENT
  Age: 60 Year
  Sex: Male

DRUGS (7)
  1. ZOMETA [Suspect]
     Active Substance: ZOLEDRONIC ACID
     Indication: PLASMA CELL MYELOMA
     Dosage: 4 MG, UNK
     Route: 042
     Dates: start: 20070926, end: 20091203
  2. VOLTAREN [Concomitant]
     Active Substance: DICLOFENAC SODIUM
     Indication: PLASMA CELL MYELOMA
     Dosage: 75 MG
     Route: 048
     Dates: start: 20070926
  3. PARIET [Concomitant]
     Active Substance: RABEPRAZOLE SODIUM
     Indication: GASTRIC ULCER
     Dosage: 10 MG
     Route: 048
     Dates: start: 20070926
  4. MUCOSTA [Concomitant]
     Active Substance: REBAMIPIDE
     Indication: GASTRIC ULCER
     Dosage: 300 MG
     Route: 048
     Dates: start: 20070926
  5. MOHRUS [Concomitant]
     Active Substance: KETOPROFEN
     Indication: PLASMA CELL MYELOMA
     Dosage: 30 MG
     Route: 061
     Dates: start: 20070926
  6. LENDORMIN [Concomitant]
     Active Substance: BROTIZOLAM
     Indication: INSOMNIA
     Dosage: 0.25 MG
     Route: 048
     Dates: start: 20070926
  7. MAGLAX [Concomitant]
     Active Substance: MAGNESIUM OXIDE
     Indication: CONSTIPATION
     Dosage: 1980 MG
     Route: 048
     Dates: start: 20070926

REACTIONS (5)
  - Hypocalcaemia [Recovered/Resolved]
  - Death [Fatal]
  - Neoplasm progression [Unknown]
  - Osteonecrosis of jaw [Unknown]
  - Malignant neoplasm progression [Unknown]

NARRATIVE: CASE EVENT DATE: 20071003
